FAERS Safety Report 11854008 (Version 2)
Quarter: 2016Q1

REPORT INFORMATION
  Report Type: Spontaneous
  Country: US (occurrence: US)
  Receive Date: 20151219
  Receipt Date: 20160225
  Transmission Date: 20160526
  Serious: No
  Sender: FDA-Public Use
  Company Number: US-009507513-1512USA008977

PATIENT
  Age: 59 Year
  Sex: Male

DRUGS (1)
  1. JANUMET XR [Suspect]
     Active Substance: METFORMIN HYDROCHLORIDE\SITAGLIPTIN PHOSPHATE
     Indication: RENAL DISORDER
     Dosage: 100/1000 MG TABLET; ONCE A DAY
     Route: 048
     Dates: start: 201406, end: 20151215

REACTIONS (2)
  - Product use issue [Unknown]
  - Laboratory test abnormal [Recovering/Resolving]

NARRATIVE: CASE EVENT DATE: 201406
